FAERS Safety Report 6582772-3 (Version None)
Quarter: 2010Q1

REPORT INFORMATION
  Report Type: 
  Country: None (occurrence: None)
  Receive Date: 20100216
  Receipt Date: 20100204
  Transmission Date: 20100710
  Serious: Yes (Other)
  Sender: FDA-Public Use
  Company Number: SE-PFIZER INC-2010014861

PATIENT
  Age: 37 Year
  Sex: Female

DRUGS (1)
  1. DIFLUCAN [Suspect]
     Dosage: 150 MG, SINGLE

REACTIONS (1)
  - PIGMENTATION DISORDER [None]
